FAERS Safety Report 4590389-5 (Version None)
Quarter: 2005Q1

REPORT INFORMATION
  Report Type: 
  Country: None (occurrence: None)
  Receive Date: 20050224
  Receipt Date: 20041210
  Transmission Date: 20050727
  Serious: Yes (Hospitalization)
  Sender: FDA-Public Use
  Company Number: DE-MERCK-0501DEU00038

PATIENT
  Age: 68 Year
  Sex: Female

DRUGS (6)
  1. VIOXX [Suspect]
     Indication: BACK PAIN
     Route: 048
     Dates: start: 20010417, end: 20010508
  2. VIOXX [Suspect]
     Route: 048
     Dates: start: 20020201
  3. VIOXX [Suspect]
     Route: 048
     Dates: start: 20040801
  4. PANTOPRAZOLE SODIUM [Concomitant]
     Route: 048
     Dates: start: 20040801
  5. PRAVASTATIN SODIUM [Concomitant]
     Route: 048
     Dates: start: 20040801
  6. OXAZEPAM [Concomitant]
     Route: 048
     Dates: start: 20040801

REACTIONS (6)
  - LUMBAR VERTEBRAL FRACTURE [None]
  - OEDEMA PERIPHERAL [None]
  - ROAD TRAFFIC ACCIDENT [None]
  - SKIN ULCER [None]
  - THROMBOPHLEBITIS [None]
  - VARICOSE VEIN [None]
